FAERS Safety Report 9054702 (Version 3)
Quarter: 2013Q1

REPORT INFORMATION
  Report Type: Spontaneous
  Country: IT (occurrence: IT)
  Receive Date: 20130208
  Receipt Date: 20130329
  Transmission Date: 20140127
  Serious: Yes (Life-Threatening)
  Sender: FDA-Public Use
  Company Number: IT-GENZYME-MOZO-1000813

PATIENT
  Age: 50 None
  Sex: Female
  Weight: 55 kg

DRUGS (2)
  1. MOZOBIL [Suspect]
     Indication: HAEMATOPOIETIC STEM CELL MOBILISATION
     Dosage: 13 MCG, UNK
     Route: 058
     Dates: start: 20130129, end: 20130129
  2. LENOGRASTIM [Suspect]
     Indication: HAEMATOPOIETIC STEM CELL MOBILISATION
     Dosage: 2 DF, QD
     Route: 058
     Dates: start: 20130125, end: 20130129

REACTIONS (1)
  - Splenic rupture [Recovered/Resolved with Sequelae]
